FAERS Safety Report 6206087-8 (Version None)
Quarter: 2009Q2

REPORT INFORMATION
  Report Type: 
  Country: None (occurrence: None)
  Receive Date: 20090528
  Receipt Date: 20090526
  Transmission Date: 20091009
  Serious: Yes (Hospitalization)
  Sender: FDA-Public Use
  Company Number: US-BRISTOL-MYERS SQUIBB COMPANY-14636724

PATIENT
  Age: 74 Year
  Sex: Female

DRUGS (12)
  1. ORENCIA [Suspect]
     Indication: RHEUMATOID ARTHRITIS
     Route: 042
     Dates: start: 20090522, end: 20090522
  2. HYDROCODONE BITARTRATE [Concomitant]
     Dosage: 1DOSAGEFORM= 7.5/500MG
  3. METHOTREXATE [Concomitant]
  4. CYMBALTA [Concomitant]
  5. ACTONEL [Concomitant]
  6. PREDNISONE [Concomitant]
  7. FOLIC ACID [Concomitant]
  8. ASPIRIN [Concomitant]
  9. FISH OIL [Concomitant]
  10. NEXIUM [Concomitant]
  11. DIGOXIN [Concomitant]
  12. MULTI-VITAMIN [Concomitant]

REACTIONS (4)
  - ANGIOEDEMA [None]
  - CARDIAC DISORDER [None]
  - CHEST PAIN [None]
  - DYSPNOEA [None]
